FAERS Safety Report 9183153 (Version 1)
Quarter: 2013Q1

REPORT INFORMATION
  Report Type: Spontaneous
  Country: US (occurrence: US)
  Receive Date: 20130322
  Receipt Date: 20130322
  Transmission Date: 20140127
  Serious: Yes (Other)
  Sender: FDA-Public Use
  Company Number: US-BRISTOL-MYERS SQUIBB COMPANY-16914871

PATIENT
  Age: 70 Year
  Sex: Female

DRUGS (4)
  1. ERBITUX [Suspect]
     Indication: HEAD AND NECK CANCER
     Dates: start: 20120823
  2. CISPLATIN [Suspect]
     Indication: HEAD AND NECK CANCER
     Dates: start: 201112
  3. TAXOL [Suspect]
     Indication: HEAD AND NECK CANCER
     Dates: start: 201201
  4. CARBOPLATIN [Suspect]
     Indication: HEAD AND NECK CANCER
     Dates: start: 201202

REACTIONS (3)
  - Malignant neoplasm progression [Unknown]
  - Mouth ulceration [Unknown]
  - Erythema [Unknown]
